FAERS Safety Report 9402163 (Version 1)
Quarter: 2013Q3

REPORT INFORMATION
  Report Type: Report from Study
  Country: AU (occurrence: AU)
  Receive Date: 20130716
  Receipt Date: 20130716
  Transmission Date: 20140515
  Serious: Yes (Other)
  Sender: FDA-Public Use
  Company Number: PHHY2013AU067041

PATIENT
  Sex: Female

DRUGS (1)
  1. ACLASTA [Suspect]
     Dosage: 5 MG
     Route: 042
     Dates: start: 20120620

REACTIONS (4)
  - Macular degeneration [Recovering/Resolving]
  - Laryngitis [Recovering/Resolving]
  - Skin ulcer [Recovering/Resolving]
  - Conjunctivitis [Recovering/Resolving]
